FAERS Safety Report 12732800 (Version 1)
Quarter: 2016Q3

REPORT INFORMATION
  Report Type: Spontaneous
  Country: IN (occurrence: IN)
  Receive Date: 20160912
  Receipt Date: 20160912
  Transmission Date: 20161109
  Serious: Yes (Other)
  Sender: FDA-Public Use
  Company Number: IN-MYLANLABS-2016M1038171

PATIENT

DRUGS (3)
  1. DOXORUBICIN [Suspect]
     Active Substance: DOXORUBICIN
     Indication: OSTEOSARCOMA
     Route: 065
  2. IFOSFAMIDE. [Suspect]
     Active Substance: IFOSFAMIDE
     Indication: OSTEOSARCOMA
     Route: 065
  3. CISPLATIN. [Suspect]
     Active Substance: CISPLATIN
     Indication: OSTEOSARCOMA
     Route: 065

REACTIONS (8)
  - Cardiac failure [Recovered/Resolved]
  - Seizure [Unknown]
  - Chikungunya virus infection [Recovered/Resolved]
  - Respiratory distress [Unknown]
  - Sepsis [Unknown]
  - Shock [Recovered/Resolved]
  - Thrombocytopenia [Recovered/Resolved]
  - Viral myocarditis [Recovered/Resolved]
